FAERS Safety Report 9725350 (Version 1)
Quarter: 2013Q4

REPORT INFORMATION
  Report Type: Spontaneous
  Country: US (occurrence: None)
  Receive Date: 20131129
  Receipt Date: 20131129
  Transmission Date: 20140711
  Serious: Yes (Other)
  Sender: FDA-Public Use
  Company Number: ADR-2013-02170

PATIENT
  Sex: Male

DRUGS (12)
  1. BACLOFEN [Suspect]
     Indication: MUSCLE SPASTICITY
     Dates: start: 20120727
  2. PERCOCET [Suspect]
  3. METOCLOPRAMIDE [Suspect]
  4. BACLOFEN [Suspect]
  5. COLACE [Suspect]
  6. ALBUTEROL [Suspect]
  7. FLUOXETINE [Suspect]
  8. LORAZEPAM [Suspect]
  9. SENOKOT [Suspect]
  10. CIPROFLOXACIN [Suspect]
  11. MIDAZOLAM [Suspect]
  12. MILK OF MAGNESIA [Suspect]

REACTIONS (3)
  - Cerebrospinal fluid leakage [None]
  - Pseudomonas infection [None]
  - Wound [None]
